FAERS Safety Report 8135067-0 (Version None)
Quarter: 2012Q1

REPORT INFORMATION
  Report Type: 
  Country: None (occurrence: None)
  Receive Date: 20120214
  Receipt Date: 20120208
  Transmission Date: 20120608
  Serious: No
  Sender: FDA-Public Use
  Company Number: US-PFIZER INC-2012036036

PATIENT
  Age: 72 Year
  Sex: Male

DRUGS (1)
  1. ATORVASTATIN CALCIUM [Suspect]
     Dosage: 20 MG, UNK

REACTIONS (5)
  - PRURITUS [None]
  - URTICARIA [None]
  - REACTION TO DRUG EXCIPIENTS [None]
  - RASH [None]
  - PRODUCT SUBSTITUTION ISSUE [None]
